FAERS Safety Report 6811454-5 (Version None)
Quarter: 2010Q2

REPORT INFORMATION
  Report Type: 
  Country: None (occurrence: None)
  Receive Date: 20100629
  Receipt Date: 20100629
  Transmission Date: 20101027
  Serious: Yes (Death, Hospitalization)
  Sender: FDA-Public Use
  Company Number: None

PATIENT
  Age: 73 Year
  Sex: Male

DRUGS (1)
  1. TAMSULOSIN HCL [Suspect]
     Indication: BENIGN PROSTATIC HYPERPLASIA
     Dosage: 1 CAPSULE DAILY
     Dates: start: 20100524, end: 20100603

REACTIONS (5)
  - BLADDER SPASM [None]
  - CYSTITIS [None]
  - PRODUCT SUBSTITUTION ISSUE [None]
  - URINARY RETENTION [None]
  - URINE ODOUR ABNORMAL [None]
